FAERS Safety Report 17623268 (Version 1)
Quarter: 2020Q2

REPORT INFORMATION
  Report Type: Spontaneous
  Country: US (occurrence: US)
  Receive Date: 20200403
  Receipt Date: 20200403
  Transmission Date: 20200713
  Serious: Yes (Hospitalization, Other)
  Sender: FDA-Public Use
  Company Number: None

PATIENT
  Sex: Female

DRUGS (1)
  1. IPRATROPIUM-ALBUTEROL 0.5-2.5 (3)MG/3ML SOLUTION [Suspect]
     Active Substance: ALBUTEROL\IPRATROPIUM

REACTIONS (1)
  - Hospitalisation [None]
